FAERS Safety Report 15384084 (Version 4)
Quarter: 2019Q2

REPORT INFORMATION
  Report Type: Report from Study
  Country: CA (occurrence: CA)
  Receive Date: 20180914
  Receipt Date: 20190613
  Transmission Date: 20190711
  Serious: Yes (Hospitalization, Other)
  Sender: FDA-Public Use
  Company Number: CA-BRISTOL-MYERS SQUIBB COMPANY-BMS-2018-082574

PATIENT
  Age: 59 Year
  Sex: Male
  Weight: 170 kg

DRUGS (3)
  1. DASATINIB. [Suspect]
     Active Substance: DASATINIB
     Indication: PRODUCT USED FOR UNKNOWN INDICATION
     Dosage: UNK
     Route: 065
  2. TASIGNA [Suspect]
     Active Substance: NILOTINIB
     Indication: CHRONIC MYELOID LEUKAEMIA
     Dosage: 400 MG, BID
     Route: 048
  3. TASIGNA [Suspect]
     Active Substance: NILOTINIB
     Indication: PRODUCT USED FOR UNKNOWN INDICATION
     Dosage: 300 MG, BID
     Route: 048

REACTIONS (37)
  - Ear disorder [Recovered/Resolved]
  - Ear pain [Recovered/Resolved]
  - Acne [Recovered/Resolved]
  - Influenza [Recovered/Resolved]
  - Malaise [Recovered/Resolved]
  - Nausea [Recovered/Resolved]
  - Pleural effusion [Recovered/Resolved]
  - Swelling face [Recovered/Resolved]
  - Decreased appetite [Recovered/Resolved]
  - Ascites [Recovered/Resolved]
  - Asthenia [Recovered/Resolved]
  - Blood glucose increased [Recovered/Resolved]
  - Pericarditis [Recovered/Resolved]
  - Cough [Recovered/Resolved]
  - Back pain [Recovered/Resolved]
  - Blood cholesterol increased [Recovered/Resolved]
  - Inappropriate schedule of product administration [Recovered/Resolved]
  - Stress [Recovered/Resolved]
  - Drug ineffective [Recovered/Resolved]
  - Hot flush [Recovered/Resolved]
  - Pulmonary hypertension [Recovered/Resolved]
  - Hypertension [Recovered/Resolved]
  - Dyspnoea [Recovered/Resolved]
  - Gait disturbance [Recovered/Resolved]
  - Oxygen saturation decreased [Recovered/Resolved]
  - Pruritus [Recovered/Resolved]
  - White blood cell count abnormal [Recovered/Resolved]
  - Blood cholesterol decreased [Recovered/Resolved]
  - Polymerase chain reaction positive [Recovered/Resolved]
  - Biopsy bone marrow abnormal [Recovered/Resolved]
  - Erythema [Recovered/Resolved]
  - Pericardial effusion [Recovered/Resolved]
  - Pulmonary embolism [Recovered/Resolved]
  - Diabetes mellitus [Recovered/Resolved]
  - Fatigue [Recovered/Resolved]
  - Pancreatic disorder [Recovered/Resolved]
  - Respiratory tract infection viral [Recovered/Resolved]
